FAERS Safety Report 14598610 (Version 2)
Quarter: 2018Q2

REPORT INFORMATION
  Report Type: Spontaneous
  Country: JP (occurrence: JP)
  Receive Date: 20180305
  Receipt Date: 20180409
  Transmission Date: 20180711
  Serious: Yes (Other)
  Sender: FDA-Public Use
  Company Number: JP-SA-2018SA059376

PATIENT
  Age: 78 Year
  Sex: Male

DRUGS (4)
  1. IMMUNOBLADDER [Suspect]
     Active Substance: BACILLUS CALMETTE-GUERIN ANTIGEN, UNSPECIFIED SUBSTRAIN
     Indication: BLADDER CANCER STAGE I, WITH CANCER IN SITU
     Route: 043
     Dates: start: 201601, end: 201601
  2. IMMUNOBLADDER [Suspect]
     Active Substance: BACILLUS CALMETTE-GUERIN ANTIGEN, UNSPECIFIED SUBSTRAIN
     Indication: BLADDER CANCER STAGE I, WITH CANCER IN SITU
     Route: 043
  3. BCG FOR IMMUNOTHERAPY [Suspect]
     Active Substance: BACILLUS CALMETTE-GUERIN ANTIGEN, UNSPECIFIED SUBSTRAIN
     Indication: BLADDER CANCER STAGE I, WITH CANCER IN SITU
     Dosage: 8 ROUNDS OF WEEKLY
     Route: 043
  4. BCG FOR IMMUNOTHERAPY [Suspect]
     Active Substance: BACILLUS CALMETTE-GUERIN ANTIGEN, UNSPECIFIED SUBSTRAIN
     Indication: BLADDER CANCER STAGE I, WITH CANCER IN SITU
     Dosage: 8 ROUNDS OF WEEKLY
     Route: 043
     Dates: start: 201601, end: 201601

REACTIONS (3)
  - Ulcerative keratitis [Recovered/Resolved with Sequelae]
  - Ocular hyperaemia [Recovered/Resolved with Sequelae]
  - Keratitis [Recovered/Resolved with Sequelae]

NARRATIVE: CASE EVENT DATE: 20160906
